FAERS Safety Report 5263640-6 (Version None)
Quarter: 2007Q1

REPORT INFORMATION
  Report Type: 
  Country: None (occurrence: None)
  Receive Date: 20061213
  Receipt Date: 20040708
  Transmission Date: 20070707
  Serious: Yes (Other)
  Sender: FDA-Public Use
  Company Number: 2004UW05077

PATIENT
  Age: 68 Year
  Sex: Male
  Weight: 70.3075 kg

DRUGS (4)
  1. IRESSA [Suspect]
     Indication: NON-SMALL CELL LUNG CANCER
     Dosage: 250 MG DAILY PO
     Route: 048
     Dates: start: 20031001
  2. ACIPHEX [Concomitant]
  3. ATIVAN [Concomitant]
  4. COUMADIN [Concomitant]

REACTIONS (6)
  - DRY SKIN [None]
  - MEDICATION ERROR [None]
  - PROSTATIC SPECIFIC ANTIGEN INCREASED [None]
  - RASH [None]
  - SPONTANEOUS PENILE ERECTION [None]
  - VITREOUS FLOATERS [None]
